FAERS Safety Report 4457442-8 (Version None)
Quarter: 2004Q3

REPORT INFORMATION
  Report Type: 
  Country: None (occurrence: None)
  Receive Date: 20040922
  Receipt Date: 20040910
  Transmission Date: 20050211
  Serious: Yes (Other)
  Sender: FDA-Public Use
  Company Number: 2004065065

PATIENT
  Age: 74 Year
  Sex: Male
  Weight: 79.3795 kg

DRUGS (5)
  1. VIAGRA [Suspect]
     Indication: ERECTILE DYSFUNCTION
     Dosage: (50 MG), ORAL
     Route: 048
  2. ATENOLOL [Concomitant]
  3. RAMIPRIL [Concomitant]
  4. ATORVASTATIN (ATORVASTATIN) [Concomitant]
  5. ASPIRIN [Concomitant]

REACTIONS (1)
  - IMPLANTABLE DEFIBRILLATOR MALFUNCTION [None]
